FAERS Safety Report 22637489 (Version 1)
Quarter: 2023Q2

REPORT INFORMATION
  Report Type: Spontaneous
  Country: US (occurrence: None)
  Receive Date: 20230622
  Receipt Date: 20230622
  Transmission Date: 20230721
  Serious: Yes (Hospitalization)
  Sender: FDA-Public Use
  Company Number: None

PATIENT
  Sex: Male

DRUGS (4)
  1. MEKTOVI [Suspect]
     Active Substance: BINIMETINIB
     Indication: Metastases to central nervous system
     Dosage: FREQUENCY : TWICE A DAY;?
     Route: 048
     Dates: start: 202305
  2. MEKTOVI [Suspect]
     Active Substance: BINIMETINIB
     Indication: Malignant melanoma
  3. BRAFTOVI [Suspect]
     Active Substance: ENCORAFENIB
     Indication: Metastases to central nervous system
     Dosage: FREQUENCY : DAILY;?
     Route: 048
     Dates: start: 202305
  4. BRAFTOVI [Suspect]
     Active Substance: ENCORAFENIB
     Indication: Malignant melanoma

REACTIONS (2)
  - Pneumonia [None]
  - Therapy change [None]
